FAERS Safety Report 7130743-0 (Version None)
Quarter: 2010Q4

REPORT INFORMATION
  Report Type: 
  Country: None (occurrence: None)
  Receive Date: 20101201
  Receipt Date: 20101119
  Transmission Date: 20110411
  Serious: Yes (Disabling, Other)
  Sender: FDA-Public Use
  Company Number: US-ROCHE-722685

PATIENT
  Sex: Male

DRUGS (10)
  1. ACCUTANE [Suspect]
     Route: 065
     Dates: start: 19900901, end: 19910501
  2. ACCUTANE [Suspect]
     Route: 065
     Dates: start: 20000501, end: 20001201
  3. ACCUTANE [Suspect]
     Dosage: 40 MG BID FOR 5 MONTHS IN 1/04. THEN 20 MG BID IN FEB APR AND JUN
     Route: 065
     Dates: start: 20030808, end: 20040716
  4. INSULIN [Concomitant]
  5. DEPAKOTE [Concomitant]
  6. TRAMADOL HCL [Concomitant]
  7. KEFLEX [Concomitant]
     Dates: start: 20040101
  8. CLINDAMYCIN [Concomitant]
     Dates: start: 20040101
  9. KENALOG [Concomitant]
     Dosage: IL.
  10. DICLOX [Concomitant]
     Dates: start: 20030808

REACTIONS (10)
  - COLITIS ULCERATIVE [None]
  - DEPRESSION [None]
  - DRY EYE [None]
  - GASTROINTESTINAL INJURY [None]
  - INFLAMMATORY BOWEL DISEASE [None]
  - LIP DRY [None]
  - MUCOSAL DRYNESS [None]
  - NASAL DRYNESS [None]
  - OSTEOARTHRITIS [None]
  - POLYP [None]
